FAERS Safety Report 5770379-7 (Version None)
Quarter: 2008Q2

REPORT INFORMATION
  Report Type: 
  Country: None (occurrence: None)
  Receive Date: 20080613
  Receipt Date: 20080430
  Transmission Date: 20081010
  Serious: No
  Sender: FDA-Public Use
  Company Number: US-ABBOTT-08P-163-0450024-00

PATIENT
  Sex: Female
  Weight: 59.928 kg

DRUGS (9)
  1. HUMIRA [Suspect]
     Indication: CROHN'S DISEASE
     Route: 058
     Dates: start: 20080415
  2. HUMIRA [Suspect]
     Route: 058
  3. HUMIRA [Suspect]
     Route: 058
  4. PREDNISONE TAB [Concomitant]
     Indication: CROHN'S DISEASE
     Route: 048
     Dates: start: 20080401
  5. PREDNISONE TAB [Concomitant]
     Route: 048
     Dates: start: 20080301, end: 20080401
  6. MESALAMINE [Concomitant]
     Indication: CROHN'S DISEASE
     Dosage: 400MG; 2PILLS=AM; 2PILLS=MID-DAY; 2 PILLS =PM
     Route: 048
  7. IRON [Concomitant]
     Indication: ANAEMIA
     Route: 048
     Dates: start: 20071101
  8. GINKGO BILOBA [Concomitant]
     Indication: VITAMIN SUPPLEMENTATION
     Route: 048
     Dates: start: 20080101
  9. VITAMIN CAP [Concomitant]
     Indication: VITAMIN SUPPLEMENTATION
     Dates: start: 20080101

REACTIONS (6)
  - ACCIDENTAL EXPOSURE [None]
  - DIARRHOEA [None]
  - FATIGUE [None]
  - HAEMORRHAGE [None]
  - NAUSEA [None]
  - SOMNOLENCE [None]
